FAERS Safety Report 22063677 (Version 1)
Quarter: 2023Q1

REPORT INFORMATION
  Report Type: Spontaneous
  Country: CA (occurrence: None)
  Receive Date: 20230306
  Receipt Date: 20230306
  Transmission Date: 20230418
  Serious: Yes (Other)
  Sender: FDA-Public Use
  Company Number: CA-ROCHE-3297738

PATIENT
  Age: 63 Year
  Sex: Female

DRUGS (4)
  1. RITUXIMAB [Suspect]
     Active Substance: RITUXIMAB
     Indication: Product used for unknown indication
     Route: 065
  2. ACTEMRA [Concomitant]
     Active Substance: TOCILIZUMAB
     Route: 065
  3. ORENCIA [Concomitant]
     Active Substance: ABATACEPT
  4. XELJANZ [Concomitant]
     Active Substance: TOFACITINIB CITRATE

REACTIONS (3)
  - Psoriatic arthropathy [Unknown]
  - Rheumatoid arthritis [Unknown]
  - Treatment failure [Unknown]
